FAERS Safety Report 9232654 (Version 1)
Quarter: 2013Q2

REPORT INFORMATION
  Report Type: Spontaneous
  Country: US (occurrence: US)
  Receive Date: 20130416
  Receipt Date: 20130416
  Transmission Date: 20140414
  Serious: Yes (Other)
  Sender: FDA-Public Use
  Company Number: US-SHIRE-ALL1-2013-02245

PATIENT
  Sex: Male

DRUGS (3)
  1. VYVANSE [Suspect]
     Indication: PRODUCT USED FOR UNKNOWN INDICATION
     Dosage: UNK, UNKNOWN
     Route: 048
  2. VYVANSE [Suspect]
     Dosage: 140 MG (TWO, 70 MG CAPSULES), OTHER (PER DAY)
     Route: 048
  3. VYVANSE [Suspect]
     Dosage: 210 MG (SOMETIMES THREE, 70 MG CAPSULES, OTHER (PER DAY)
     Route: 048

REACTIONS (7)
  - Post concussion syndrome [Recovering/Resolving]
  - Fall [Recovered/Resolved]
  - Therapeutic response unexpected [Unknown]
  - Sleep disorder [Unknown]
  - Decreased appetite [Unknown]
  - Overdose [Not Recovered/Not Resolved]
  - Off label use [Not Recovered/Not Resolved]
